FAERS Safety Report 16987168 (Version 3)
Quarter: 2019Q4

REPORT INFORMATION
  Report Type: Spontaneous
  Country: DE (occurrence: DE)
  Receive Date: 20191102
  Receipt Date: 20191223
  Transmission Date: 20200122
  Serious: Yes (Death, Hospitalization, Other)
  Sender: FDA-Public Use
  Company Number: DE-TEVA-2019-DE-1130298

PATIENT
  Age: 81 Year
  Sex: Male
  Weight: 65 kg

DRUGS (12)
  1. LANTAREL 10 MG [Suspect]
     Active Substance: METHOTREXATE SODIUM
     Indication: RHEUMATOID ARTHRITIS
     Dosage: 10 MILLIGRAM DAILY; 1-0-0-0
     Route: 048
     Dates: start: 20190831, end: 20190906
  2. DECORTIN H 5 MG [Concomitant]
     Dosage: 5 MILLIGRAM DAILY; DAILY DOSE: 5 MG MILLGRAM(S) EVERY DAYS, (1-0-0-0)
     Dates: start: 20190831
  3. CLEXANE 40 MG 0.4ML SF [Concomitant]
     Dosage: DAILY DOSE: 40 MG MILLGRAM(S) EVERY DAYS, (0-0-1-0)
  4. NOVAMINSULFON (METAMIZOL) [Suspect]
     Active Substance: METAMIZOLE
     Indication: PAIN
     Dosage: 160 GTT DAILY; DAILY DOSE: 160 GTT DROP(S) EVERY DAYS 4 SEPARATED DOSES, METAMIZOL DROPS. (1-1-1-1)
     Route: 048
     Dates: start: 20190831, end: 20190906
  5. DUODART 0.5/0.4 MG [Concomitant]
     Dosage: DAILY DOSE: 1 DF DOSAGE FORM EVERY DAYS, (1-0-0-0)
  6. OXYGESIC AKUT 5 MG [Concomitant]
     Dosage: 5 MG
  7. LANTAREL 10 MG [Suspect]
     Active Substance: METHOTREXATE SODIUM
     Dosage: LONG-TERM THERAPY SINCE 2007, 1X PER WEEK UNTIL 31-AUG-2019
     Dates: start: 2007, end: 20190831
  8. ZOFRAN 4 MG FILMTABLETTEN [Concomitant]
  9. PIRITRAMID 7.5 MG [Concomitant]
  10. VOMEX 62 MG [Concomitant]
  11. FURDANTIN 100 MG [Concomitant]
     Dosage: DAILY DOSE: 100 MG MILLGRAM(S) EVERY DAYS, (1-0-0-0)
  12. MOVICOL [Concomitant]
     Active Substance: POLYETHYLENE GLYCOL 3350\POTASSIUM CHLORIDE\SODIUM BICARBONATE\SODIUM CHLORIDE

REACTIONS (7)
  - Urosepsis [Fatal]
  - Labelled drug-drug interaction medication error [Fatal]
  - Pneumonia [Fatal]
  - Agranulocytosis [Fatal]
  - Product prescribing error [Fatal]
  - Pancytopenia [Fatal]
  - Accidental overdose [Fatal]

NARRATIVE: CASE EVENT DATE: 20190907
